FAERS Safety Report 20997390 (Version 1)
Quarter: 2022Q2

REPORT INFORMATION
  Report Type: Spontaneous
  Country: CA (occurrence: CA)
  Receive Date: 20220623
  Receipt Date: 20220623
  Transmission Date: 20220721
  Serious: Yes (Hospitalization, Other)
  Sender: FDA-Public Use
  Company Number: CA-BAUSCH-BL-2022-015905

PATIENT
  Sex: Female
  Weight: 1 kg

DRUGS (16)
  1. METRONIDAZOLE [Suspect]
     Active Substance: METRONIDAZOLE
     Indication: Pericoronitis
     Route: 064
  2. METRONIDAZOLE [Suspect]
     Active Substance: METRONIDAZOLE
     Indication: Febrile neutropenia
  3. BETAMETHASONE [Suspect]
     Active Substance: BETAMETHASONE
     Indication: Maternal therapy to enhance foetal lung maturity
     Route: 064
  4. DAUNORUBICIN [Suspect]
     Active Substance: DAUNORUBICIN
     Indication: Acute myeloid leukaemia
     Dosage: FREQUENCY: CYCLICAL
     Route: 064
  5. CEFUROXIME [Suspect]
     Active Substance: CEFUROXIME
     Indication: Febrile neutropenia
     Route: 064
  6. CEFUROXIME [Suspect]
     Active Substance: CEFUROXIME
     Indication: Pericoronitis
  7. CYTARABINE [Suspect]
     Active Substance: CYTARABINE
     Indication: Product used for unknown indication
     Dosage: FREQUENCY: CYCLICAL
     Route: 064
  8. CYTARABINE [Suspect]
     Active Substance: CYTARABINE
     Indication: Acute myeloid leukaemia
     Dosage: 1000 MG/SQ M X 1 PER 1
     Route: 064
  9. MEROPENEM [Suspect]
     Active Substance: MEROPENEM
     Indication: Pericoronitis
     Route: 064
  10. MEROPENEM [Suspect]
     Active Substance: MEROPENEM
     Indication: Febrile neutropenia
  11. OXYTOCIN [Suspect]
     Active Substance: OXYTOCIN
     Indication: Labour induction
     Route: 065
  12. DINOPROSTONE [Suspect]
     Active Substance: DINOPROSTONE
     Indication: Induction of cervix ripening
     Route: 064
  13. DINOPROSTONE [Suspect]
     Active Substance: DINOPROSTONE
     Indication: Product used for unknown indication
  14. AMPHOTERICIN B [Suspect]
     Active Substance: AMPHOTERICIN B
     Indication: Antifungal prophylaxis
     Route: 064
  15. FERROUS SULFATE ANHYDROUS [Suspect]
     Active Substance: FERROUS SULFATE ANHYDROUS
     Indication: Supplementation therapy
     Route: 064
  16. MAGNESIUM [Suspect]
     Active Substance: MAGNESIUM
     Indication: Nervous system disorder prophylaxis
     Route: 064

REACTIONS (5)
  - Foetal anaemia [Recovered/Resolved]
  - Haemoglobin decreased [Recovered/Resolved]
  - Periventricular leukomalacia [Recovered/Resolved]
  - Premature baby [Recovered/Resolved]
  - White matter lesion [Recovered/Resolved]
